FAERS Safety Report 9245428 (Version 7)
Quarter: 2015Q2

REPORT INFORMATION
  Report Type: Spontaneous
  Country: US (occurrence: US)
  Receive Date: 20130422
  Receipt Date: 20150505
  Transmission Date: 20150821
  Serious: Yes (Other)
  Sender: FDA-Public Use
  Company Number: US-009507513-1304USA010998

PATIENT
  Sex: Male
  Weight: 147.39 kg

DRUGS (2)
  1. PROPECIA [Suspect]
     Active Substance: FINASTERIDE
     Indication: ALOPECIA
     Dosage: 1 MG, QD
     Route: 048
     Dates: start: 199807, end: 200612
  2. PROSCAR [Suspect]
     Active Substance: FINASTERIDE
     Indication: ALOPECIA
     Dosage: 1.6 MG PER DAY
     Route: 048
     Dates: start: 2000, end: 200612

REACTIONS (73)
  - Groin pain [Unknown]
  - Fatigue [Not Recovered/Not Resolved]
  - Hypertension [Unknown]
  - Sleep apnoea syndrome [Unknown]
  - Hypogonadism [Not Recovered/Not Resolved]
  - Death of relative [Unknown]
  - Cellulitis [Unknown]
  - Peripheral venous disease [Unknown]
  - Narcolepsy [Unknown]
  - Gastrooesophageal reflux disease [Unknown]
  - Apnoea [Unknown]
  - Urine ketone body present [Unknown]
  - Suicidal ideation [Unknown]
  - Cognitive disorder [Not Recovered/Not Resolved]
  - Anxiety [Not Recovered/Not Resolved]
  - Disturbance in attention [Unknown]
  - Hormone level abnormal [Unknown]
  - Cellulitis [Unknown]
  - Haemorrhoids [Unknown]
  - Pyrexia [Unknown]
  - Urinary incontinence [Unknown]
  - Ejaculation failure [Unknown]
  - Brain injury [Unknown]
  - Alopecia [Unknown]
  - Abdominal pain [Unknown]
  - Lymphadenopathy [Unknown]
  - Penis injury [Unknown]
  - Facial bones fracture [Unknown]
  - Vasectomy [Unknown]
  - Varicose vein [Unknown]
  - Dyspnoea exertional [Unknown]
  - Lower urinary tract symptoms [Not Recovered/Not Resolved]
  - Seborrhoea [Unknown]
  - Cerebral atrophy [Unknown]
  - Hot flush [Unknown]
  - Peyronie^s disease [Unknown]
  - Breast enlargement [Unknown]
  - Testicular pain [Unknown]
  - Penile size reduced [Not Recovered/Not Resolved]
  - Diarrhoea [Unknown]
  - Normal pressure hydrocephalus [Unknown]
  - Sinus disorder [Unknown]
  - Dizziness [Unknown]
  - Benign prostatic hyperplasia [Unknown]
  - Varicocele [Unknown]
  - Loss of libido [Unknown]
  - Suicidal ideation [Unknown]
  - Wrong technique in drug usage process [Unknown]
  - Neuropathy peripheral [Unknown]
  - Prostatic specific antigen increased [Recovered/Resolved]
  - Asthenia [Unknown]
  - Malaise [Unknown]
  - Upper respiratory tract infection [Unknown]
  - Arthropod bite [Unknown]
  - Pollakiuria [Unknown]
  - Abdominal distension [Unknown]
  - Drug hypersensitivity [Unknown]
  - Ejaculation disorder [Unknown]
  - Drug ineffective [Unknown]
  - Lymphoedema [Unknown]
  - Arthritis [Unknown]
  - Sexual dysfunction [Not Recovered/Not Resolved]
  - Depression [Not Recovered/Not Resolved]
  - Depressed mood [Unknown]
  - Libido decreased [Unknown]
  - Testicular atrophy [Unknown]
  - Drug administration error [Unknown]
  - Fibromyalgia [Unknown]
  - Restless legs syndrome [Not Recovered/Not Resolved]
  - Diarrhoea [Unknown]
  - Pruritus [Unknown]
  - Semen volume decreased [Unknown]
  - Erectile dysfunction [Not Recovered/Not Resolved]

NARRATIVE: CASE EVENT DATE: 1999
